FAERS Safety Report 4972955-8 (Version None)
Quarter: 2006Q2

REPORT INFORMATION
  Report Type: 
  Country: None (occurrence: None)
  Receive Date: 20060414
  Receipt Date: 20060125
  Transmission Date: 20061013
  Serious: Yes (Death, Hospitalization)
  Sender: FDA-Public Use
  Company Number: US-AMGEN-US167050

PATIENT
  Sex: Female
  Weight: 67.2 kg

DRUGS (9)
  1. PROCRIT [Suspect]
     Indication: RENAL FAILURE CHRONIC
     Route: 058
     Dates: start: 20030401
  2. SYNTHROID [Concomitant]
     Route: 048
  3. LASIX [Concomitant]
     Route: 048
  4. COREG [Concomitant]
     Route: 048
  5. LIPITOR [Concomitant]
     Route: 048
  6. APRESOLINE [Concomitant]
     Route: 048
  7. CATAPRES [Concomitant]
     Route: 048
  8. ALLOPURINOL [Concomitant]
     Route: 048
  9. ZETIA [Concomitant]
     Route: 048

REACTIONS (3)
  - CARDIAC FAILURE CONGESTIVE [None]
  - CONDITION AGGRAVATED [None]
  - DEATH [None]
